FAERS Safety Report 5533957-6 (Version None)
Quarter: 2007Q4

REPORT INFORMATION
  Report Type: 
  Country: None (occurrence: None)
  Receive Date: 20071129
  Receipt Date: 20071114
  Transmission Date: 20080405
  Serious: Yes (Other)
  Sender: FDA-Public Use
  Company Number: 8028138

PATIENT
  Age: 7 Year
  Sex: Male

DRUGS (2)
  1. EQUASYM [Suspect]
     Indication: ATTENTION DEFICIT/HYPERACTIVITY DISORDER
     Dosage: 20 MG
     Dates: start: 20070820, end: 20070914
  2. HEXAL METHYLPHENIDATE [Concomitant]

REACTIONS (3)
  - CRYING [None]
  - DEPRESSION [None]
  - MOOD SWINGS [None]
